FAERS Safety Report 24111679 (Version 6)
Quarter: 2025Q4

REPORT INFORMATION
  Report Type: Report from Study
  Country: IN (occurrence: IN)
  Receive Date: 20240718
  Receipt Date: 20251110
  Transmission Date: 20260118
  Serious: Yes (Other)
  Sender: NOVARTIS
  Company Number: IN-002147023-NVSC2022IN188995

PATIENT
  Age: 65 Year
  Sex: Female

DRUGS (8)
  1. TASIGNA [Suspect]
     Active Substance: NILOTINIB
     Indication: Chronic myeloid leukaemia
     Dosage: 400 MG, BID
     Route: 048
     Dates: start: 20170508
  2. TASIGNA [Suspect]
     Active Substance: NILOTINIB
     Dosage: 300 MG, BID
     Route: 048
     Dates: start: 20170805
  3. TASIGNA [Suspect]
     Active Substance: NILOTINIB
     Dosage: 400 MG, BID
     Route: 048
     Dates: end: 20220615
  4. TASIGNA [Suspect]
     Active Substance: NILOTINIB
     Dosage: 400 MG, BID
     Route: 048
     Dates: start: 20220616
  5. TASIGNA [Suspect]
     Active Substance: NILOTINIB
     Dosage: UNK, OTHER (200 MG 2 CAPS B.D)
     Route: 065
     Dates: start: 20230621
  6. TASIGNA [Suspect]
     Active Substance: NILOTINIB
     Dosage: 400 MG, BID
     Route: 048
  7. TASIGNA [Suspect]
     Active Substance: NILOTINIB
     Dosage: 300 MG, BID
     Route: 048
  8. TASIGNA [Suspect]
     Active Substance: NILOTINIB
     Dosage: 300 MG, QD
     Route: 048

REACTIONS (42)
  - Ventricular extrasystoles [Unknown]
  - Tricuspid valve incompetence [Unknown]
  - Pulmonary arterial hypertension [Unknown]
  - Loss of consciousness [Unknown]
  - Meningioma [Unknown]
  - Electrocardiogram abnormal [Unknown]
  - Hypertension [Unknown]
  - Nausea [Unknown]
  - Vomiting [Unknown]
  - Haemoglobin decreased [Unknown]
  - Platelet count decreased [Unknown]
  - Blood glucose increased [Unknown]
  - Pallor [Unknown]
  - Xanthelasma [Unknown]
  - Presyncope [Unknown]
  - Headache [Unknown]
  - Treatment failure [Unknown]
  - Ejection fraction abnormal [Unknown]
  - Diastolic dysfunction [Unknown]
  - Bundle branch block right [Unknown]
  - Blood bilirubin abnormal [Unknown]
  - Aspartate aminotransferase abnormal [Unknown]
  - Blood alkaline phosphatase abnormal [Unknown]
  - Gamma-glutamyltransferase abnormal [Unknown]
  - Protein total abnormal [Unknown]
  - Blood albumin abnormal [Unknown]
  - Globulin abnormal [Unknown]
  - Blood creatinine abnormal [Unknown]
  - Blood potassium abnormal [Unknown]
  - White blood cell count abnormal [Unknown]
  - Haemoglobin abnormal [Unknown]
  - Platelet count abnormal [Unknown]
  - Mean platelet volume abnormal [Unknown]
  - Neutrophil percentage abnormal [Unknown]
  - Monocyte count abnormal [Unknown]
  - Mean cell haemoglobin concentration abnormal [Unknown]
  - Red cell distribution width abnormal [Unknown]
  - Blood glucose abnormal [Unknown]
  - Mean cell volume abnormal [Unknown]
  - Lymphocyte percentage abnormal [Unknown]
  - Lymphocyte count abnormal [Unknown]
  - Neutrophil count abnormal [Unknown]

NARRATIVE: CASE EVENT DATE: 20220615
